FAERS Safety Report 11649810 (Version 1)
Quarter: 2015Q4

REPORT INFORMATION
  Report Type: Spontaneous
  Country: US (occurrence: US)
  Receive Date: 20151021
  Receipt Date: 20151021
  Transmission Date: 20160304
  Serious: Yes (Hospitalization)
  Sender: FDA-Public Use
  Company Number: US-PROCTER_AND_GAMBLE-GS15009366

PATIENT
  Sex: Female

DRUGS (1)
  1. CREST PRO-HEALTH (STANNOUS FLUORIDE) [Suspect]
     Active Substance: STANNOUS FLUORIDE
     Dosage: HALF A PEA SIZE
     Route: 002

REACTIONS (4)
  - Bronchial oedema [Recovered/Resolved]
  - Sinus congestion [Recovered/Resolved]
  - Hypersensitivity [Recovered/Resolved]
  - Respiration abnormal [Recovered/Resolved]
